FAERS Safety Report 9851994 (Version 1)
Quarter: 2014Q1

REPORT INFORMATION
  Report Type: Report from Study
  Country: AT (occurrence: AT)
  Receive Date: 20140129
  Receipt Date: 20140129
  Transmission Date: 20141002
  Serious: Yes (Death, Other)
  Sender: FDA-Public Use
  Company Number: AT-MYLANLABS-2014S1001327

PATIENT
  Age: 81 Year
  Sex: Male

DRUGS (2)
  1. AZACITIDINE [Suspect]
     Indication: CHRONIC MYELOMONOCYTIC LEUKAEMIA
     Dosage: 100 MG/DAY D1-7
     Route: 058
  2. GRANISETRON [Suspect]
     Indication: ANTIEMETIC SUPPORTIVE CARE
     Route: 065

REACTIONS (2)
  - Pneumonia [Fatal]
  - Colitis ischaemic [Recovered/Resolved]
